FAERS Safety Report 21875011 (Version 2)
Quarter: 2023Q1

REPORT INFORMATION
  Report Type: Spontaneous
  Country: US (occurrence: None)
  Receive Date: 20230117
  Receipt Date: 20230210
  Transmission Date: 20230417
  Serious: No
  Sender: FDA-Public Use
  Company Number: 2022A409701

PATIENT
  Sex: Male

DRUGS (1)
  1. PULMICORT FLEXHALER [Suspect]
     Active Substance: BUDESONIDE
     Route: 055

REACTIONS (6)
  - Respiratory disorder [Unknown]
  - Hypoacusis [Not Recovered/Not Resolved]
  - Product dose omission issue [Unknown]
  - Device use issue [Not Recovered/Not Resolved]
  - Device issue [Unknown]
  - Wrong technique in device usage process [Unknown]

NARRATIVE: CASE EVENT DATE: 20221121
